FAERS Safety Report 9863117 (Version 2)
Quarter: 2014Q1

REPORT INFORMATION
  Report Type: Spontaneous
  Country: RS (occurrence: RS)
  Receive Date: 20140203
  Receipt Date: 20140306
  Transmission Date: 20141002
  Serious: Yes (Death)
  Sender: FDA-Public Use
  Company Number: RS-JNJFOC-20140114954

PATIENT
  Age: 53 Year
  Sex: Female
  Weight: 55 kg

DRUGS (6)
  1. RISPOLEPT CONSTA [Suspect]
     Indication: SCHIZOPHRENIA, PARANOID TYPE
     Route: 030
     Dates: end: 20131211
  2. RIVOTRIL [Concomitant]
     Route: 048
  3. BROMAZEPAME [Concomitant]
     Route: 048
  4. BIPERIDEN [Concomitant]
     Route: 048
  5. ELICEA [Concomitant]
     Route: 048
  6. DONEPEZIL [Concomitant]
     Indication: DEMENTIA
     Route: 048

REACTIONS (1)
  - Death [Fatal]
